FAERS Safety Report 8116802 (Version 2)
Quarter: 2013Q1

REPORT INFORMATION
  Report Type: Spontaneous
  Country: DE (occurrence: DE)
  Receive Date: 20110901
  Receipt Date: 20130221
  Transmission Date: 20140127
  Serious: Yes (Hospitalization, Disabling, Other)
  Sender: FDA-Public Use
  Company Number: DE-AMGEN-DEUSP2011043118

PATIENT
  Age: 67 Year
  Sex: Female
  Weight: 60 kg

DRUGS (1)
  1. PROLIA [Suspect]
     Indication: OSTEOPOROSIS
     Dosage: 60 MG, UNK
     Route: 058
     Dates: start: 20110713

REACTIONS (18)
  - Pyrexia [Unknown]
  - Chills [Unknown]
  - Headache [Unknown]
  - Skin burning sensation [Unknown]
  - Burning sensation [Unknown]
  - Abdominal discomfort [Unknown]
  - Cystitis noninfective [Unknown]
  - Blister [Unknown]
  - Gamma-glutamyltransferase increased [Unknown]
  - Adiponectin increased [Unknown]
  - Alanine aminotransferase increased [Unknown]
  - C-reactive protein increased [Unknown]
  - Implant site inflammation [Unknown]
  - Dysuria [Unknown]
  - Gastrointestinal disorder [Unknown]
  - Pruritus [Unknown]
  - Skin infection [Unknown]
  - Erythema [Unknown]
